FAERS Safety Report 9100082 (Version 1)
Quarter: 2013Q1

REPORT INFORMATION
  Report Type: Spontaneous
  Country: US (occurrence: US)
  Receive Date: 20130215
  Receipt Date: 20130215
  Transmission Date: 20140127
  Serious: Yes (Other)
  Sender: FDA-Public Use
  Company Number: US-BRISTOL-MYERS SQUIBB COMPANY-17355314

PATIENT
  Age: 48 Year
  Sex: Female

DRUGS (2)
  1. ORENCIA [Suspect]
     Dosage: DATE OF LAST INFUSION: 04JAN2013
     Route: 042
  2. PREDNISONE [Suspect]

REACTIONS (3)
  - Gastric haemorrhage [Unknown]
  - Cough [Unknown]
  - Nasopharyngitis [Unknown]
